FAERS Safety Report 25973279 (Version 1)
Quarter: 2025Q4

REPORT INFORMATION
  Report Type: Spontaneous
  Country: EU (occurrence: EU)
  Receive Date: 20251029
  Receipt Date: 20251029
  Transmission Date: 20260117
  Serious: Yes (Disabling)
  Sender: AUROBINDO
  Company Number: EU-FAMHP-DHH-N2025-125680

PATIENT
  Sex: Male

DRUGS (1)
  1. CIPROFLOXACIN [Suspect]
     Active Substance: CIPROFLOXACIN
     Indication: Transurethral prostatectomy
     Dosage: 2 DOSAGE FORM, ONCE A DAY
     Route: 048
     Dates: start: 20250920, end: 20250922

REACTIONS (9)
  - Abdominal discomfort [Recovering/Resolving]
  - Balance disorder [Recovering/Resolving]
  - Feeling drunk [Recovering/Resolving]
  - Palpitations [Recovering/Resolving]
  - Feeling abnormal [Recovering/Resolving]
  - Skin burning sensation [Recovering/Resolving]
  - Scab [Recovering/Resolving]
  - Rash [Recovering/Resolving]
  - Vertigo [Recovered/Resolved]

NARRATIVE: CASE EVENT DATE: 20250922
